FAERS Safety Report 21417794 (Version 10)
Quarter: 2023Q4

REPORT INFORMATION
  Report Type: Spontaneous
  Country: PR (occurrence: PR)
  Receive Date: 20221006
  Receipt Date: 20231221
  Transmission Date: 20240110
  Serious: No
  Sender: FDA-Public Use
  Company Number: PR-PFIZER INC-202200809717

PATIENT
  Age: 67 Year
  Sex: Female

DRUGS (1)
  1. IBRANCE [Suspect]
     Active Substance: PALBOCICLIB
     Indication: Breast cancer female
     Dosage: 125 MG, 1X/DAY (TAKE 1 TAB DAILY EVERY DAY, 28 DAYS)
     Dates: start: 20220609

REACTIONS (6)
  - Hypoacusis [Unknown]
  - Neoplasm progression [Unknown]
  - Iron deficiency anaemia [Unknown]
  - Monoclonal gammopathy [Unknown]
  - Off label use [Unknown]
  - Product use issue [Unknown]

NARRATIVE: CASE EVENT DATE: 20220101
